FAERS Safety Report 14744026 (Version 1)
Quarter: 2018Q2

REPORT INFORMATION
  Report Type: Spontaneous
  Country: PT (occurrence: PT)
  Receive Date: 20180411
  Receipt Date: 20180411
  Transmission Date: 20180711
  Serious: Yes (Hospitalization)
  Sender: FDA-Public Use
  Company Number: PT-TEVA-2018-PT-880673

PATIENT
  Age: 45 Year
  Sex: Female
  Weight: 60 kg

DRUGS (8)
  1. TRITICUM [Interacting]
     Active Substance: TRAZODONE HYDROCHLORIDE
     Indication: DEPRESSION
     Dosage: 150 MILLIGRAM DAILY;
     Route: 065
  2. MORFEX [Interacting]
     Active Substance: FLURAZEPAM HYDROCHLORIDE
     Indication: ANXIETY
     Dosage: 15 MILLIGRAM DAILY;
     Route: 065
  3. DIAZEPAM. [Suspect]
     Active Substance: DIAZEPAM
     Indication: ANXIETY
     Dosage: 10 MILLIGRAM DAILY;
     Route: 065
  4. HARVONI [Interacting]
     Active Substance: LEDIPASVIR\SOFOSBUVIR
     Indication: HEPATITIS C
     Dosage: 1 DOSAGE FORMS DAILY; VALIDADE: 31-01-2017
     Route: 048
     Dates: start: 20150618, end: 20150909
  5. INVIRASE [Concomitant]
     Active Substance: SAQUINAVIR MESYLATE
     Indication: HIV INFECTION
     Dosage: 2000 MILLIGRAM DAILY;
     Route: 048
     Dates: start: 20061013
  6. TRUVADA [Concomitant]
     Active Substance: EMTRICITABINE\TENOFOVIR DISOPROXIL FUMARATE
     Indication: HIV INFECTION
     Dosage: 1 DOSAGE FORMS DAILY;
     Route: 048
     Dates: start: 2006
  7. CIPRALEX [Concomitant]
     Active Substance: ESCITALOPRAM OXALATE
     Indication: DEPRESSION
     Dosage: 40 MILLIGRAM DAILY; PHARMACEUTICAL FORM DOSAGE: 20MG.
     Route: 065
  8. NORVIR [Concomitant]
     Active Substance: RITONAVIR
     Indication: HIV INFECTION
     Dosage: 1 DOSAGE FORMS DAILY;
     Route: 048

REACTIONS (5)
  - Alopecia [Recovered/Resolved with Sequelae]
  - Presyncope [Recovered/Resolved]
  - Toxicity to various agents [Recovered/Resolved]
  - Drug interaction [Recovered/Resolved]
  - Blood pressure decreased [Recovered/Resolved]

NARRATIVE: CASE EVENT DATE: 20150618
